FAERS Safety Report 10897008 (Version 1)
Quarter: 2015Q1

REPORT INFORMATION
  Report Type: Spontaneous
  Country: US (occurrence: None)
  Receive Date: 20150302
  Receipt Date: 20150302
  Transmission Date: 20150721
  Serious: No
  Sender: FDA-Public Use
  Company Number: None

PATIENT
  Age: 68 Year
  Sex: Male
  Weight: 66.7 kg

DRUGS (12)
  1. FLUCONAZOLE. [Concomitant]
     Active Substance: FLUCONAZOLE
  2. VANCOMYCIN [Concomitant]
     Active Substance: VANCOMYCIN
  3. FAMOTIDINE. [Concomitant]
     Active Substance: FAMOTIDINE
  4. FUROSEMIDE. [Concomitant]
     Active Substance: FUROSEMIDE
  5. CHLORHEXIDINE [Concomitant]
     Active Substance: CHLORHEXIDINE
  6. LEVOTHYROXINE [Concomitant]
     Active Substance: LEVOTHYROXINE
  7. HYDROCORTISONE. [Concomitant]
     Active Substance: HYDROCORTISONE
  8. ERYTHROMYCIN. [Suspect]
     Active Substance: ERYTHROMYCIN
  9. METHYLNALTREXONE [Concomitant]
     Active Substance: METHYLNALTREXONE
  10. TPN [Concomitant]
     Active Substance: AMINO ACIDS\DEXTROSE\ELECTROLYTES NOS\SOYBEAN OIL
  11. POTASSIUM CHLORIDE. [Concomitant]
     Active Substance: POTASSIUM CHLORIDE
  12. IMIPENEM AND CILASTATIN [Concomitant]
     Active Substance: CILASTATIN SODIUM\IMIPENEM

REACTIONS (1)
  - Rash [None]
